FAERS Safety Report 24963071 (Version 1)
Quarter: 2025Q1

REPORT INFORMATION
  Report Type: Spontaneous
  Country: US (occurrence: US)
  Receive Date: 20250213
  Receipt Date: 20250213
  Transmission Date: 20250409
  Serious: No
  Sender: SANOFI AVENTIS
  Company Number: US-SA-2025SA042688

PATIENT
  Age: 8 Year
  Sex: Male

DRUGS (10)
  1. DUPIXENT [Suspect]
     Active Substance: DUPILUMAB
     Indication: Asthma
     Dosage: 200 MG, QOW
     Route: 058
     Dates: start: 20241203
  2. ADVAIR HFA [Concomitant]
     Active Substance: FLUTICASONE PROPIONATE\SALMETEROL XINAFOATE
  3. ALBUTEROL SULFATE [Concomitant]
     Active Substance: ALBUTEROL SULFATE
  4. ALBUTEROL [Concomitant]
     Active Substance: ALBUTEROL
  5. AZSTARYS [Concomitant]
     Active Substance: DEXMETHYLPHENIDATE HYDROCHLORIDE\SERDEXMETHYLPHENIDATE CHLORIDE
  6. EPINEPHRINE [Concomitant]
     Active Substance: EPINEPHRINE
  7. MONTELUKAST [Concomitant]
     Active Substance: MONTELUKAST
  8. VITAMINS [Concomitant]
     Active Substance: VITAMINS
  9. PREDNISOLONE [Concomitant]
     Active Substance: PREDNISOLONE
  10. VYVANSE [Concomitant]
     Active Substance: LISDEXAMFETAMINE DIMESYLATE

REACTIONS (3)
  - Impaired quality of life [Unknown]
  - Asthma [Unknown]
  - Injection site reaction [Unknown]

NARRATIVE: CASE EVENT DATE: 20250101
